FAERS Safety Report 4390796-X (Version None)
Quarter: 2004Q3

REPORT INFORMATION
  Report Type: 
  Country: None (occurrence: None)
  Receive Date: 20040707
  Receipt Date: 20030812
  Transmission Date: 20050211
  Serious: No
  Sender: FDA-Public Use
  Company Number: US-BRISTOL-MYERS SQUIBB COMPANY-12352969

PATIENT
  Age: 20 Year
  Sex: Female
  Weight: 91 kg

DRUGS (1)
  1. PROLIXIN DECANOATE [Suspect]
     Indication: PSYCHOTIC DISORDER
     Route: 051

REACTIONS (1)
  - GALACTORRHOEA [None]
